FAERS Safety Report 12452142 (Version 13)
Quarter: 2017Q3

REPORT INFORMATION
  Report Type: Report from Study
  Country: US (occurrence: US)
  Receive Date: 20160609
  Receipt Date: 20170901
  Transmission Date: 20171127
  Serious: Yes (Hospitalization, Other)
  Sender: FDA-Public Use
  Company Number: US-BAYER-2016-004986

PATIENT
  Age: 68 Year
  Sex: Female
  Weight: 90.7 kg

DRUGS (30)
  1. ADEMPAS [Suspect]
     Active Substance: RIOCIGUAT
     Indication: PULMONARY ARTERIAL HYPERTENSION
     Dosage: 2.5 MG, TID
     Route: 048
  2. LASIX [Concomitant]
     Active Substance: FUROSEMIDE
     Indication: OEDEMA PERIPHERAL
     Dosage: 40 MG, PRN
     Route: 048
  3. ALBUTEROL SULFATE. [Concomitant]
     Active Substance: ALBUTEROL SULFATE
     Dosage: 0.63MG/3ML AS NEEDED
  4. OFEV [Concomitant]
     Active Substance: NINTEDANIB
     Dosage: UNK
  5. ADEMPAS [Suspect]
     Active Substance: RIOCIGUAT
     Indication: PULMONARY ARTERIAL HYPERTENSION
     Dosage: 2.5 MG, TID
     Route: 048
  6. VELETRI [Suspect]
     Active Substance: EPOPROSTENOL
     Dosage: UNK
  7. DILAUDID [Concomitant]
     Active Substance: HYDROMORPHONE HYDROCHLORIDE
     Dosage: 1 MG, PRN
     Route: 048
  8. SPIRONOLACTONE. [Concomitant]
     Active Substance: SPIRONOLACTONE
     Dosage: 25 MG, BID
     Route: 048
  9. OXYGEN. [Concomitant]
     Active Substance: OXYGEN
  10. ADEMPAS [Suspect]
     Active Substance: RIOCIGUAT
     Indication: PULMONARY ARTERIAL HYPERTENSION
     Dosage: UNK
     Route: 048
     Dates: start: 20151228
  11. ADEMPAS [Suspect]
     Active Substance: RIOCIGUAT
     Indication: PULMONARY ARTERIAL HYPERTENSION
     Dosage: 1 MG, TID
     Route: 048
  12. ADEMPAS [Suspect]
     Active Substance: RIOCIGUAT
     Indication: PULMONARY ARTERIAL HYPERTENSION
     Dosage: 0.5 MG, TID
     Route: 048
     Dates: start: 20160106
  13. ADEMPAS [Suspect]
     Active Substance: RIOCIGUAT
     Indication: PULMONARY ARTERIAL HYPERTENSION
     Dosage: 1.5 MG, TID
     Route: 048
  14. ADEMPAS [Suspect]
     Active Substance: RIOCIGUAT
     Indication: PULMONARY ARTERIAL HYPERTENSION
     Dosage: 1.5 MG, TID
     Route: 048
  15. ADEMPAS [Suspect]
     Active Substance: RIOCIGUAT
     Indication: PULMONARY ARTERIAL HYPERTENSION
     Dosage: 2.5 MG, TID
     Route: 048
  16. OMEPRAZOLE. [Concomitant]
     Active Substance: OMEPRAZOLE
     Dosage: 20 MG, QD
  17. BUDESONIDE. [Concomitant]
     Active Substance: BUDESONIDE
     Dosage: UNK
  18. BROVANA [Concomitant]
     Active Substance: ARFORMOTEROL TARTRATE
  19. ADEMPAS [Suspect]
     Active Substance: RIOCIGUAT
     Indication: PULMONARY ARTERIAL HYPERTENSION
     Dosage: 1 MG, TID
     Route: 048
  20. LOTRIMIN AF [CLOTRIMAZOLE] [Concomitant]
     Route: 062
  21. ZANTAC [Concomitant]
     Active Substance: RANITIDINE HYDROCHLORIDE
     Dosage: 150 MG, QD
     Route: 048
  22. ADEMPAS [Suspect]
     Active Substance: RIOCIGUAT
     Indication: PULMONARY ARTERIAL HYPERTENSION
     Dosage: 1.5 MG, TID
     Route: 048
  23. ADEMPAS [Suspect]
     Active Substance: RIOCIGUAT
     Indication: PULMONARY ARTERIAL HYPERTENSION
     Dosage: 2.5 MG, TID
     Route: 048
  24. OPSUMIT [Concomitant]
     Active Substance: MACITENTAN
     Dosage: UNK
  25. LOSARTAN POTASSIUM. [Concomitant]
     Active Substance: LOSARTAN POTASSIUM
     Dosage: 25 MG, QD
     Route: 048
  26. AMLODIPINE [Concomitant]
     Active Substance: AMLODIPINE BESYLATE
     Dosage: 2.5 MG, QD
  27. ADEMPAS [Suspect]
     Active Substance: RIOCIGUAT
     Indication: PULMONARY ARTERIAL HYPERTENSION
     Dosage: 2.5 MG, TID
     Route: 048
  28. ADEMPAS [Suspect]
     Active Substance: RIOCIGUAT
     Indication: PULMONARY ARTERIAL HYPERTENSION
     Dosage: 2.5 MG, TID
     Route: 048
  29. BENADRYL [ACRIVASTINE] [Suspect]
     Active Substance: ACRIVASTINE
     Dosage: UNK
  30. METOPROLOL TARTRATE. [Concomitant]
     Active Substance: METOPROLOL TARTRATE
     Dosage: 5MG/5ML SOLUTION

REACTIONS (51)
  - Dyspnoea [Unknown]
  - Chronic obstructive pulmonary disease [None]
  - Oxygen saturation decreased [None]
  - Drug intolerance [None]
  - Nocturnal dyspnoea [None]
  - Interstitial lung disease [None]
  - Pulmonary arterial hypertension [Not Recovered/Not Resolved]
  - Blood pressure diastolic decreased [Unknown]
  - Epistaxis [Unknown]
  - Headache [Unknown]
  - Multiple allergies [None]
  - Dry mouth [None]
  - Rhinorrhoea [None]
  - Dizziness [Unknown]
  - Accidental overdose [Unknown]
  - Application site rash [Unknown]
  - Asthenia [None]
  - Back pain [Unknown]
  - Sleep apnoea syndrome [None]
  - Gastrooesophageal reflux disease [None]
  - Dizziness [None]
  - Gait disturbance [Unknown]
  - Cough [Unknown]
  - Drug intolerance [Unknown]
  - Wheezing [None]
  - Diarrhoea [Unknown]
  - Rhinitis allergic [None]
  - Dyspnoea exertional [None]
  - Rash generalised [Unknown]
  - Sinus congestion [None]
  - Constipation [Unknown]
  - Tremor [Not Recovered/Not Resolved]
  - Dyspnoea [Unknown]
  - Fatigue [None]
  - Dyspnoea exertional [None]
  - Sinusitis [Unknown]
  - Pneumonitis [Unknown]
  - Hypoxia [Not Recovered/Not Resolved]
  - Dyspnoea [Not Recovered/Not Resolved]
  - Diarrhoea [Not Recovered/Not Resolved]
  - Dyspnoea [None]
  - Diarrhoea [None]
  - Oedema [None]
  - Somnolence [Unknown]
  - Ear discomfort [Unknown]
  - Productive cough [Unknown]
  - Dyspepsia [Unknown]
  - Device occlusion [Unknown]
  - Lymphadenopathy [None]
  - Pain in jaw [Unknown]
  - Weight increased [Not Recovered/Not Resolved]

NARRATIVE: CASE EVENT DATE: 20160601
